FAERS Safety Report 14837446 (Version 1)
Quarter: 2018Q2

REPORT INFORMATION
  Report Type: Spontaneous
  Country: US (occurrence: US)
  Receive Date: 20180502
  Receipt Date: 20180502
  Transmission Date: 20180711
  Serious: No
  Sender: FDA-Public Use
  Company Number: US-PFIZER INC-2018172715

PATIENT
  Age: 26 Year

DRUGS (1)
  1. XELJANZ [Suspect]
     Active Substance: TOFACITINIB CITRATE
     Dosage: UNK

REACTIONS (16)
  - Gait disturbance [Unknown]
  - Back pain [Unknown]
  - Psoriasis [Unknown]
  - Headache [Unknown]
  - Peripheral swelling [Unknown]
  - Nasal congestion [Unknown]
  - Rhinorrhoea [Unknown]
  - Ear infection [Unknown]
  - Pain [Unknown]
  - Nasopharyngitis [Unknown]
  - Erythema [Unknown]
  - Oropharyngeal pain [Unknown]
  - Arthralgia [Unknown]
  - Fatigue [Unknown]
  - Sneezing [Unknown]
  - Joint swelling [Unknown]
